FAERS Safety Report 10957699 (Version 1)
Quarter: 2015Q1

REPORT INFORMATION
  Report Type: Spontaneous
  Country: DE (occurrence: DE)
  Receive Date: 20150326
  Receipt Date: 20150326
  Transmission Date: 20150721
  Serious: Yes (Death, Hospitalization, Other)
  Sender: FDA-Public Use
  Company Number: DE-CELGENE-062-50794-10041313

PATIENT

DRUGS (4)
  1. AZACITIDINE. [Suspect]
     Active Substance: AZACITIDINE
     Dosage: 125 MG OR 150 MG
     Route: 058
  2. AZACITIDINE. [Suspect]
     Active Substance: AZACITIDINE
     Indication: ACUTE MYELOID LEUKAEMIA
     Route: 058
     Dates: start: 2009
  3. DONOR LYMPHOCYTE [Concomitant]
     Indication: ACUTE MYELOID LEUKAEMIA
     Route: 041
  4. DONOR LYMPHOCYTE [Concomitant]
     Indication: CHRONIC MYELOMONOCYTIC LEUKAEMIA

REACTIONS (11)
  - Pulmonary sepsis [Fatal]
  - Neutropenia [Unknown]
  - Skin irritation [Unknown]
  - Neutropenic infection [Unknown]
  - Disease progression [Unknown]
  - Diarrhoea [Unknown]
  - Urosepsis [Fatal]
  - Graft versus host disease [Unknown]
  - Constipation [Unknown]
  - Leukocytosis [Unknown]
  - Nausea [Unknown]
